FAERS Safety Report 4466097-8 (Version None)
Quarter: 2004Q3

REPORT INFORMATION
  Report Type: 
  Country: None (occurrence: None)
  Receive Date: 20040929
  Receipt Date: 20040929
  Transmission Date: 20050211
  Serious: Yes (Hospitalization)
  Sender: FDA-Public Use
  Company Number: None

PATIENT
  Age: 48 Year
  Sex: Female
  Weight: 65.7716 kg

DRUGS (1)
  1. FERRIC GLUCONATE (SCHEIN) 12.5MG/ML 5ML [Suspect]
     Indication: ANAEMIA
     Dosage: 250 MG IV Q WEEK
     Route: 042
     Dates: start: 20040927

REACTIONS (4)
  - ANXIETY [None]
  - BACK PAIN [None]
  - BURNING SENSATION [None]
  - SCREAMING [None]
